FAERS Safety Report 24770104 (Version 1)
Quarter: 2024Q4

REPORT INFORMATION
  Report Type: Spontaneous
  Country: US (occurrence: US)
  Receive Date: 20241224
  Receipt Date: 20241224
  Transmission Date: 20250114
  Serious: No
  Sender: CELLTRION
  Company Number: US-CELLTRION INC.-2024US009071

PATIENT

DRUGS (5)
  1. TRUXIMA [Suspect]
     Active Substance: RITUXIMAB-ABBS
     Indication: Dermatomyositis
     Dosage: 1000MG WEEKS 0,2 EVERY 6 MONTHS, FIRST DOSE
     Dates: start: 20240419
  2. BACTRIM [Concomitant]
     Active Substance: SULFAMETHOXAZOLE\TRIMETHOPRIM
  3. PREDNISONE [Concomitant]
     Active Substance: PREDNISONE
  4. NEXIUM I.V. [Concomitant]
     Active Substance: ESOMEPRAZOLE SODIUM
  5. BENZONATATE [Concomitant]
     Active Substance: BENZONATATE

REACTIONS (1)
  - Off label use [Unknown]
